FAERS Safety Report 8878081 (Version 1)
Quarter: 2012Q4

REPORT INFORMATION
  Report Type: 
  Country: US (occurrence: US)
  Receive Date: 20121025
  Receipt Date: 20121025
  Transmission Date: 20130627
  Serious: No
  Sender: FDA-Public Use
  Company Number: US-AMGEN-USASP2012020445

PATIENT
  Age: 30 Year
  Sex: Female

DRUGS (8)
  1. ENBREL [Suspect]
     Indication: PRODUCT USED FOR UNKNOWN INDICATION
     Dosage: 50 mg, qwk
  2. HUMIRA [Concomitant]
     Dosage: 40 mg, UNK
  3. PLAQUENIL                          /00072602/ [Concomitant]
     Dosage: 200 mg, UNK
  4. BUPROPION [Concomitant]
     Dosage: 150 mg, UNK
  5. INDOMETHACIN                       /00003801/ [Concomitant]
     Dosage: 25 mg, UNK
  6. TRAMADOL HCL [Concomitant]
     Dosage: 50 mg, UNK
  7. PRILOSEC                           /00661201/ [Concomitant]
     Dosage: 20 mg, UNK
  8. AZURETTE [Concomitant]

REACTIONS (1)
  - Drug ineffective [Unknown]
